FAERS Safety Report 15949581 (Version 1)
Quarter: 2019Q1

REPORT INFORMATION
  Report Type: Spontaneous
  Country: US (occurrence: US)
  Receive Date: 20190212
  Receipt Date: 20190212
  Transmission Date: 20190417
  Serious: Yes (Other)
  Sender: FDA-Public Use
  Company Number: PHEH2019US005367

PATIENT
  Age: 67 Year
  Sex: Female
  Weight: 73.94 kg

DRUGS (5)
  1. XARELTO [Concomitant]
     Active Substance: RIVAROXABAN
     Indication: DEEP VEIN THROMBOSIS
     Dosage: 20 MG, QD
     Route: 048
     Dates: start: 20170629
  2. ZOMIG [Concomitant]
     Active Substance: ZOLMITRIPTAN
     Indication: MIGRAINE
     Dosage: 2.5 MG, QD
     Route: 048
  3. FEMARA [Suspect]
     Active Substance: LETROZOLE
     Indication: BREAST CANCER METASTATIC
     Dosage: 2.5 MG, QD
     Route: 048
     Dates: start: 20170601, end: 20170925
  4. IBRANCE [Suspect]
     Active Substance: PALBOCICLIB
     Indication: BREAST CANCER METASTATIC
     Dosage: 100 MG, Q3W
     Route: 048
     Dates: start: 201706, end: 20170925
  5. PROPRANOL HCL [Concomitant]
     Indication: MIGRAINE
     Dosage: 120 MG, QD
     Route: 048

REACTIONS (9)
  - Eye disorder [Not Recovered/Not Resolved]
  - Feeling abnormal [Unknown]
  - Positron emission tomogram abnormal [Unknown]
  - Drug ineffective [Unknown]
  - Condition aggravated [Unknown]
  - Pain [Recovering/Resolving]
  - Deep vein thrombosis [Recovered/Resolved]
  - Swelling [Recovering/Resolving]
  - Metabolic function test abnormal [Unknown]

NARRATIVE: CASE EVENT DATE: 20170629
